FAERS Safety Report 6658209-2 (Version None)
Quarter: 2010Q1

REPORT INFORMATION
  Report Type: 
  Country: None (occurrence: None)
  Receive Date: 20100330
  Receipt Date: 20100317
  Transmission Date: 20100710
  Serious: Yes (Hospitalization)
  Sender: FDA-Public Use
  Company Number: FR-CELGENEUS-056-21880-09082081

PATIENT
  Sex: Male
  Weight: 56 kg

DRUGS (12)
  1. REVLIMID [Suspect]
     Indication: MULTIPLE MYELOMA
     Route: 048
     Dates: start: 20090526, end: 20090706
  2. REVLIMID [Suspect]
     Route: 048
     Dates: start: 20090706, end: 20090719
  3. REVLIMID [Suspect]
     Route: 048
     Dates: start: 20090720, end: 20090816
  4. REVLIMID [Suspect]
     Route: 048
     Dates: start: 20090817, end: 20090828
  5. REVLIMID [Suspect]
     Route: 048
     Dates: start: 20090928
  6. ADRIAMYCIN PFS [Suspect]
     Indication: MULTIPLE MYELOMA
     Route: 065
     Dates: start: 20090817, end: 20090821
  7. DEXAMETHASONE [Suspect]
     Indication: MULTIPLE MYELOMA
     Dosage: 80 MG/MONTH
     Route: 048
     Dates: start: 20090821, end: 20090827
  8. DEXAMETHASONE [Suspect]
     Dates: start: 20090817, end: 20090820
  9. CYCLOPHOSPHAMIDE [Concomitant]
     Indication: MULTIPLE MYELOMA
     Route: 051
     Dates: start: 20090526, end: 20090616
  10. CYCLOPHOSPHAMIDE [Concomitant]
     Route: 051
     Dates: start: 20090706, end: 20090720
  11. SKENAN [Concomitant]
     Indication: DRUG USE FOR UNKNOWN INDICATION
     Route: 065
  12. LOW MOLECULAR WEIGHT HEPARIN [Concomitant]
     Indication: PROPHYLAXIS

REACTIONS (1)
  - PERICARDITIS [None]
